FAERS Safety Report 6534930 (Version 5)
Quarter: 2013Q2

REPORT INFORMATION
  Report Type: Report from Study
  Country: DE (occurrence: DE)
  Receive Date: 20080125
  Receipt Date: 20130530
  Transmission Date: 20140414
  Serious: Yes (Hospitalization)
  Sender: FDA-Public Use
  Company Number: DE-JNJFOC-20080104922

PATIENT
  Age: 25 Year
  Sex: Female
  Weight: 53 kg

DRUGS (5)
  1. INFLIXIMAB [Suspect]
     Indication: CROHN^S DISEASE
     Route: 042
     Dates: start: 20070620
  2. INFLIXIMAB [Suspect]
     Indication: CROHN^S DISEASE
     Route: 042
     Dates: start: 20070606
  3. PREDNISOLONE [Concomitant]
     Indication: CROHN^S DISEASE
     Dates: start: 200709
  4. PENTASA [Concomitant]
     Indication: CROHN^S DISEASE
     Dates: start: 200709
  5. ENDOCORT [Concomitant]
     Indication: CROHN^S DISEASE
     Dates: start: 200709

REACTIONS (4)
  - Abdominal neoplasm [Recovered/Resolved]
  - Ileal stenosis [Recovering/Resolving]
  - Crohn^s disease [Recovering/Resolving]
  - Wound infection [Recovering/Resolving]
